FAERS Safety Report 7814334-1 (Version None)
Quarter: 2011Q4

REPORT INFORMATION
  Report Type: 
  Country: None (occurrence: None)
  Receive Date: 20111014
  Receipt Date: 20111011
  Transmission Date: 20120403
  Serious: Yes (Death)
  Sender: FDA-Public Use
  Company Number: US-GENZYME-CLOF-1001716

PATIENT

DRUGS (7)
  1. TACROLIMUS [Concomitant]
     Indication: PROPHYLAXIS AGAINST GRAFT VERSUS HOST DISEASE
     Dosage: UNK
  2. MELPHALAN HYDROCHLORIDE [Suspect]
     Indication: ACUTE LEUKAEMIA
     Dosage: 70 MG/M2, QD
     Route: 065
  3. THIOTEPA [Suspect]
     Indication: STEM CELL TRANSPLANT
  4. CLOLAR [Suspect]
     Indication: STEM CELL TRANSPLANT
  5. THIOTEPA [Suspect]
     Indication: ACUTE LEUKAEMIA
     Dosage: 10 MG/KG, QD
     Route: 065
  6. MELPHALAN HYDROCHLORIDE [Suspect]
     Indication: STEM CELL TRANSPLANT
  7. CLOLAR [Suspect]
     Indication: ACUTE LEUKAEMIA
     Dosage: UNK
     Route: 065

REACTIONS (1)
  - ACUTE LEUKAEMIA [None]
